FAERS Safety Report 7928327 (Version 2)
Quarter: 2013Q2

REPORT INFORMATION
  Report Type: Spontaneous
  Country: US (occurrence: US)
  Receive Date: 20110503
  Receipt Date: 20130507
  Transmission Date: 20140414
  Serious: Yes (Other)
  Sender: FDA-Public Use
  Company Number: US-ROCHE-743330

PATIENT
  Sex: Female
  Weight: 72.6 kg

DRUGS (3)
  1. ACCUTANE [Suspect]
     Indication: ACNE
     Route: 065
     Dates: start: 1995, end: 1996
  2. ACCUTANE [Suspect]
     Route: 065
     Dates: start: 19970101, end: 19971201
  3. ORTHO TRI-CYCLEN [Concomitant]

REACTIONS (6)
  - Colitis ulcerative [Unknown]
  - Gastrointestinal injury [Unknown]
  - Large intestine polyp [Unknown]
  - Depression [Unknown]
  - Inflammatory bowel disease [Unknown]
  - Arthritis [Unknown]
